FAERS Safety Report 4548362-9 (Version None)
Quarter: 2005Q1

REPORT INFORMATION
  Report Type: 
  Country: None (occurrence: None)
  Receive Date: 20050110
  Receipt Date: 20040812
  Transmission Date: 20050727
  Serious: Yes (Hospitalization)
  Sender: FDA-Public Use
  Company Number: FR-ROCHE-377569

PATIENT
  Age: 23 Year
  Sex: Female

DRUGS (6)
  1. CYMEVAN [Suspect]
     Route: 042
     Dates: end: 20040515
  2. ROVALCYTE [Suspect]
     Route: 048
     Dates: start: 20040604, end: 20040622
  3. ROVALCYTE [Suspect]
     Route: 048
     Dates: start: 20040623, end: 20040625
  4. CELLCEPT [Concomitant]
     Indication: PROPHYLAXIS
     Dosage: THERAPY WAS STOPPED ON 23 JUNE 2004 AND WAS RE-INTRODUCED ON 18 JULY 2004 AT THE DOSE OF 250 MG TWI+
     Route: 048
  5. BACTRIM [Concomitant]
     Route: 048
     Dates: end: 20040725
  6. FLODIL [Concomitant]
     Route: 048

REACTIONS (1)
  - AGRANULOCYTOSIS [None]
